FAERS Safety Report 12109283 (Version 1)
Quarter: 2016Q1

REPORT INFORMATION
  Report Type: Spontaneous
  Country: US (occurrence: US)
  Receive Date: 20160224
  Receipt Date: 20160224
  Transmission Date: 20160526
  Serious: No
  Sender: FDA-Public Use
  Company Number: US-PFIZER INC-2016046074

PATIENT
  Age: 48 Year
  Sex: Male
  Weight: 136.8 kg

DRUGS (4)
  1. TIGAN [Suspect]
     Active Substance: TRIMETHOBENZAMIDE HYDROCHLORIDE
     Indication: NAUSEA
     Dosage: 300 MG, 1X/DAY
     Route: 048
     Dates: start: 20160121
  2. TIGAN [Suspect]
     Active Substance: TRIMETHOBENZAMIDE HYDROCHLORIDE
     Indication: VOMITING
  3. OXYMORPHONE [Suspect]
     Active Substance: OXYMORPHONE
     Indication: SPINAL OPERATION
     Dosage: 10 MG, 4X/DAY
     Route: 048
     Dates: start: 20160114
  4. OXYMORPHONE [Suspect]
     Active Substance: OXYMORPHONE
     Indication: INTERVERTEBRAL DISC DEGENERATION

REACTIONS (1)
  - Miosis [Recovered/Resolved]

NARRATIVE: CASE EVENT DATE: 20160123
